FAERS Safety Report 5525179-X (Version None)
Quarter: 2007Q4

REPORT INFORMATION
  Report Type: 
  Country: None (occurrence: None)
  Receive Date: 20071126
  Receipt Date: 20071114
  Transmission Date: 20080405
  Serious: Yes (Death)
  Sender: FDA-Public Use
  Company Number: JP-JNJFOC-20071104470

PATIENT
  Sex: Male

DRUGS (11)
  1. DORIBAX [Suspect]
     Route: 041
  2. DORIBAX [Suspect]
     Route: 041
  3. DORIBAX [Suspect]
     Indication: PNEUMONIA
     Route: 041
  4. VANCOMYCIN [Concomitant]
     Indication: PNEUMONIA
     Route: 041
  5. NEOPAREN [Concomitant]
     Route: 041
  6. BFLUID [Concomitant]
     Route: 041
  7. DIGOSIN [Concomitant]
     Route: 041
  8. FUROSEMIDE [Concomitant]
     Route: 042
  9. ALTAT [Concomitant]
     Route: 041
  10. ELIETEN [Concomitant]
     Route: 041
  11. FUNGUARD [Concomitant]
     Route: 041

REACTIONS (1)
  - FUNGAL SEPSIS [None]
